FAERS Safety Report 11164463 (Version 1)
Quarter: 2015Q2

REPORT INFORMATION
  Report Type: Spontaneous
  Country: US (occurrence: None)
  Receive Date: 20150603
  Receipt Date: 20150603
  Transmission Date: 20150821
  Serious: Yes (Hospitalization)
  Sender: FDA-Public Use
  Company Number: None

PATIENT
  Age: 57 Year
  Sex: Female
  Weight: 78 kg

DRUGS (1)
  1. BEVACIZUMAB [Suspect]
     Active Substance: BEVACIZUMAB
     Dates: end: 20150421

REACTIONS (12)
  - Pain in extremity [None]
  - Nausea [None]
  - Seizure [None]
  - Deep vein thrombosis [None]
  - Peripheral swelling [None]
  - Loss of consciousness [None]
  - Pneumonia aspiration [None]
  - Vomiting [None]
  - Hypotension [None]
  - Respiratory failure [None]
  - Cerebrovascular accident [None]
  - Erythema [None]

NARRATIVE: CASE EVENT DATE: 20150427
